FAERS Safety Report 13278272 (Version 1)
Quarter: 2017Q1

REPORT INFORMATION
  Report Type: Spontaneous
  Country: JP (occurrence: JP)
  Receive Date: 20170228
  Receipt Date: 20170228
  Transmission Date: 20170428
  Serious: Yes (Other)
  Sender: FDA-Public Use
  Company Number: JP-JNJFOC-20170226255

PATIENT

DRUGS (1)
  1. XARELTO [Suspect]
     Active Substance: RIVAROXABAN
     Indication: EMBOLIC CEREBRAL INFARCTION
     Route: 048

REACTIONS (3)
  - Lung neoplasm malignant [Unknown]
  - Trousseau^s syndrome [Unknown]
  - Cerebral infarction [Unknown]
